FAERS Safety Report 4333755-5 (Version None)
Quarter: 2004Q2

REPORT INFORMATION
  Report Type: 
  Country: None (occurrence: None)
  Receive Date: 20040406
  Receipt Date: 20040406
  Transmission Date: 20050107
  Serious: Yes (Other)
  Sender: FDA-Public Use
  Company Number: None

PATIENT
  Sex: Male
  Weight: 104.5 kg

DRUGS (6)
  1. FLUDARABINE 25MGM2 IV Q EVERY 28 DAYS NEXT DOSE START 04/19/2004 [Suspect]
     Dosage: 25MGM2 IV Q EVERY 28 DAYS NEXT DOSE START 04/19/2004
     Route: 042
  2. THALIDOMIDE 300MG PO QD LAST DOSE 3/21/04 PRIOR TO SAE [Suspect]
     Dosage: 300 MG PO QD
     Route: 048
     Dates: start: 20040321
  3. COLACE [Concomitant]
  4. SENOKOT [Concomitant]
  5. COUMADIN [Concomitant]
  6. COMPAZINE [Concomitant]

REACTIONS (1)
  - LIVER FUNCTION TEST ABNORMAL [None]
